FAERS Safety Report 5893261-3 (Version None)
Quarter: 2008Q3

REPORT INFORMATION
  Report Type: 
  Country: None (occurrence: None)
  Receive Date: 20080919
  Receipt Date: 20080910
  Transmission Date: 20090109
  Serious: Yes (Other)
  Sender: FDA-Public Use
  Company Number: 2008AP001565

PATIENT
  Age: 34 Year
  Sex: Male

DRUGS (5)
  1. PAROXETINE HCL [Suspect]
     Dosage: 30, MG; QD, 20 MG,
     Dates: start: 19981023
  2. DIAZEPAM [Concomitant]
  3. REBOXETINE (REBOXETINE) [Concomitant]
  4. CITALOPRAM HYDROBROMIDE [Concomitant]
  5. DOSULEPIN (DOSULEPIN) [Concomitant]

REACTIONS (11)
  - ABNORMAL DREAMS [None]
  - CHEST PAIN [None]
  - DEPRESSION [None]
  - DRUG DEPENDENCE [None]
  - DRUG WITHDRAWAL SYNDROME [None]
  - IRRITABILITY [None]
  - MOOD SWINGS [None]
  - MUSCLE SPASMS [None]
  - NIGHTMARE [None]
  - SEDATION [None]
  - SYNCOPE VASOVAGAL [None]
